FAERS Safety Report 5301471-9 (Version None)
Quarter: 2007Q2

REPORT INFORMATION
  Report Type: 
  Country: None (occurrence: None)
  Receive Date: 20070418
  Receipt Date: 20070412
  Transmission Date: 20071010
  Serious: Yes (Other)
  Sender: FDA-Public Use
  Company Number: US-PFIZER INC-2006015009

PATIENT
  Sex: Male
  Weight: 95.3 kg

DRUGS (1)
  1. BEXTRA [Suspect]
     Indication: BACK PAIN

REACTIONS (2)
  - ARRHYTHMIA [None]
  - CEREBROVASCULAR ACCIDENT [None]
